FAERS Safety Report 13143311 (Version 5)
Quarter: 2018Q4

REPORT INFORMATION
  Report Type: Spontaneous
  Country: JP (occurrence: JP)
  Receive Date: 20170124
  Receipt Date: 20181128
  Transmission Date: 20190204
  Serious: Yes (Hospitalization, Other)
  Sender: FDA-Public Use
  Company Number: JP-ACTELION-A-CH2017-148399

PATIENT
  Age: 27 Year
  Sex: Male
  Weight: 62 kg

DRUGS (14)
  1. REMODULIN [Suspect]
     Active Substance: TREPROSTINIL
     Dosage: 67.5 NG/KG, PER MIN
     Route: 058
  2. RIOCIGUAT. [Concomitant]
     Active Substance: RIOCIGUAT
     Indication: PORTOPULMONARY HYPERTENSION
     Dosage: 0.5 MG, QD
     Route: 048
     Dates: start: 20171127
  3. OPSUMIT [Suspect]
     Active Substance: MACITENTAN
     Dosage: 1 MG, UNK
     Route: 048
     Dates: start: 20161012
  4. REMODULIN [Suspect]
     Active Substance: TREPROSTINIL
     Dosage: 90 NG/KG, PER MIN
     Route: 058
     Dates: start: 201702
  5. LOPRAMIDE [Concomitant]
     Indication: VOMITING
     Dosage: 600 MG, BID
     Route: 048
  6. REMODULIN [Suspect]
     Active Substance: TREPROSTINIL
     Indication: PORTOPULMONARY HYPERTENSION
     Dosage: UNK
     Route: 058
     Dates: start: 20160929
  7. ADEMPAS [Concomitant]
     Active Substance: RIOCIGUAT
     Indication: PORTOPULMONARY HYPERTENSION
     Dosage: UNK
     Dates: start: 20171206
  8. VENTAVIS [Concomitant]
     Active Substance: ILOPROST
     Indication: PORTOPULMONARY HYPERTENSION
     Dosage: 20 MCG
     Route: 042
     Dates: start: 20160818
  9. FUROSEMIDE. [Concomitant]
     Active Substance: FUROSEMIDE
     Indication: PORTOPULMONARY HYPERTENSION
     Dosage: 40 MG, QD
     Route: 048
     Dates: start: 20160826
  10. OPSUMIT [Suspect]
     Active Substance: MACITENTAN
     Dosage: 1 MG, UNK
     Route: 048
     Dates: start: 20161030
  11. SPIRONOLACTONE. [Concomitant]
     Active Substance: SPIRONOLACTONE
     Indication: PORTOPULMONARY HYPERTENSION
     Dosage: UNK
     Route: 048
     Dates: start: 20160826
  12. NAPROXEN. [Suspect]
     Active Substance: NAPROXEN
     Indication: PAIN
     Dosage: Q600 MG, QD
     Route: 048
     Dates: start: 20160825, end: 20161001
  13. POTASSIUM CHLORIDE. [Concomitant]
     Active Substance: POTASSIUM CHLORIDE
     Dosage: 600 MG, BID
     Route: 048
  14. OPSUMIT [Suspect]
     Active Substance: MACITENTAN
     Indication: PORTOPULMONARY HYPERTENSION
     Dosage: 2 MG, UNK
     Route: 048
     Dates: start: 20161012

REACTIONS (26)
  - Device related infection [Recovered/Resolved]
  - Bacteraemia [Recovered/Resolved]
  - Nausea [Recovered/Resolved]
  - Catheter management [Unknown]
  - Pulmonary hypertension [Unknown]
  - Condition aggravated [Unknown]
  - Leukopenia [Unknown]
  - Pyrexia [Recovered/Resolved]
  - Cardiomegaly [Recovering/Resolving]
  - Irritable bowel syndrome [Unknown]
  - Central venous catheterisation [Unknown]
  - Injection site haemorrhage [Unknown]
  - Malaise [Unknown]
  - Nasopharyngitis [Recovered/Resolved]
  - Cardiac failure [Recovering/Resolving]
  - Stomatitis [Recovering/Resolving]
  - Infrequent bowel movements [Unknown]
  - Catheter site warmth [Recovered/Resolved]
  - Haematoma infection [Unknown]
  - Abdominal pain [Unknown]
  - Injection site swelling [Unknown]
  - Liver transplant [Unknown]
  - Concomitant disease progression [Recovering/Resolving]
  - Diarrhoea [Unknown]
  - General physical condition abnormal [Unknown]
  - Pseudomembranous colitis [Unknown]

NARRATIVE: CASE EVENT DATE: 20161018
